FAERS Safety Report 22075301 (Version 1)
Quarter: 2023Q1

REPORT INFORMATION
  Report Type: Spontaneous
  Country: GB (occurrence: GB)
  Receive Date: 20230308
  Receipt Date: 20230308
  Transmission Date: 20230418
  Serious: Yes (Other)
  Sender: FDA-Public Use
  Company Number: GB-AMERICAN REGENT INC-2023000549

PATIENT
  Age: 29 Year
  Sex: Female

DRUGS (2)
  1. FERINJECT [Suspect]
     Active Substance: FERRIC CARBOXYMALTOSE
     Indication: High density lipoprotein decreased
     Dosage: UNK
     Dates: start: 20230221, end: 20230221
  2. FOLIC ACID [Concomitant]
     Active Substance: FOLIC ACID
     Indication: Supplementation therapy
     Dosage: 5 MILLIGRAM
     Route: 065

REACTIONS (6)
  - Maternal exposure during pregnancy [Unknown]
  - Syncope [Recovered/Resolved]
  - Oxygen saturation decreased [Recovered/Resolved]
  - Hypoacusis [Recovered/Resolved]
  - Infusion site rash [Recovered/Resolved]
  - Off label use [Unknown]

NARRATIVE: CASE EVENT DATE: 20230221
